FAERS Safety Report 15896515 (Version 2)
Quarter: 2019Q1

REPORT INFORMATION
  Report Type: Report from Study
  Country: GB (occurrence: GB)
  Receive Date: 20190131
  Receipt Date: 20190212
  Transmission Date: 20190417
  Serious: Yes (Hospitalization)
  Sender: FDA-Public Use
  Company Number: GB-PFIZER INC-2019036452

PATIENT
  Age: 17 Year
  Sex: Female
  Weight: 65.1 kg

DRUGS (20)
  1. PARACETAMOL [Concomitant]
     Active Substance: ACETAMINOPHEN
  2. SEVREDOL [Concomitant]
     Active Substance: MORPHINE
  3. CYCLIZINE [Concomitant]
     Active Substance: CYCLIZINE
  4. SERTRALINE HCL [Suspect]
     Active Substance: SERTRALINE HYDROCHLORIDE
     Dosage: 50 MG, 1 IN 1 D
     Route: 048
     Dates: start: 20190128
  5. ETOPOSIDE. [Suspect]
     Active Substance: ETOPOSIDE
     Indication: OSTEOSARCOMA RECURRENT
     Dosage: 180 MG, DAY 1-3 OF EACH CYCLE, INTRAVENOUS INFUSION
     Route: 042
     Dates: start: 20181204
  6. SERTRALINE HCL [Suspect]
     Active Substance: SERTRALINE HYDROCHLORIDE
     Indication: ANXIETY
     Dosage: 125 MG, 1 IN 1 D
     Route: 048
     Dates: end: 20190110
  7. LENVATINIB [Suspect]
     Active Substance: LENVATINIB
     Indication: OSTEOSARCOMA RECURRENT
     Dosage: 24 MG, 1 IN 1 D
     Route: 048
     Dates: start: 20181204
  8. ONDANSETRAN [Concomitant]
     Active Substance: ONDANSETRON HYDROCHLORIDE
  9. LEVOMEPROMAZINE [Concomitant]
     Active Substance: LEVOMEPROMAZINE
  10. RANITIDINE. [Concomitant]
     Active Substance: RANITIDINE
  11. SODIUM PICOSULPHATE [Concomitant]
     Active Substance: SODIUM PICOSULFATE
  12. CETIRIZINE [Concomitant]
     Active Substance: CETIRIZINE HYDROCHLORIDE
  13. COTRIMOXAZOLE [Concomitant]
     Active Substance: SULFAMETHOXAZOLE\TRIMETHOPRIM
  14. CANNABIS OIL [Concomitant]
     Active Substance: CANNABIS SATIVA SEED OIL
  15. OMEPRAZOLE. [Concomitant]
     Active Substance: OMEPRAZOLE
  16. MOVICOL [Concomitant]
     Active Substance: POLYETHYLENE GLYCOL 3350\POTASSIUM CHLORIDE\SODIUM BICARBONATE\SODIUM CHLORIDE
  17. LORAZEPAM. [Concomitant]
     Active Substance: LORAZEPAM
  18. IFOSFAMIDE. [Suspect]
     Active Substance: IFOSFAMIDE
     Indication: OSTEOSARCOMA RECURRENT
     Dosage: 5.4 G, CYCLIC ON DAY 1-3 OF EACH CYCLE
     Route: 042
     Dates: start: 20181204
  19. MORPHINE [Concomitant]
     Active Substance: MORPHINE
  20. PEPTAC [Concomitant]
     Active Substance: RANITIDINE HYDROCHLORIDE

REACTIONS (2)
  - Febrile neutropenia [Not Recovered/Not Resolved]
  - Hypotension [Recovered/Resolved]

NARRATIVE: CASE EVENT DATE: 20190110
